FAERS Safety Report 7988999-8 (Version None)
Quarter: 2011Q4

REPORT INFORMATION
  Report Type: 
  Country: None (occurrence: None)
  Receive Date: 20111219
  Receipt Date: 20111214
  Transmission Date: 20120403
  Serious: Yes (Death, Other)
  Sender: FDA-Public Use
  Company Number: PHHY2011JP59384

PATIENT
  Sex: Male

DRUGS (10)
  1. VALSARTAN [Suspect]
     Indication: HYPERTENSION
     Dosage: 80 MG, QD
     Route: 048
     Dates: start: 20090609, end: 20110401
  2. NOVOLIN 50R [Concomitant]
     Dosage: 10 IU, UNK
     Route: 058
     Dates: start: 20070306, end: 20110401
  3. TICLOPIDINE HCL [Concomitant]
     Dosage: 200 MG, UNK
     Route: 048
     Dates: start: 20050705, end: 20110401
  4. VOGLIBOSE [Concomitant]
     Dosage: 0.9 MG, UNK
     Route: 048
     Dates: start: 20100810, end: 20110401
  5. ENALAPRIL MALEATE [Concomitant]
     Indication: HYPERTENSION
     Dosage: 5 MG, UNK
     Route: 048
     Dates: start: 20050705, end: 20110401
  6. SELBEX [Concomitant]
     Dosage: 150 MG, UNK
     Route: 048
     Dates: start: 20060725, end: 20110401
  7. LANSOPRAZOLE [Concomitant]
     Dosage: 15 MG, UNK
     Route: 048
     Dates: start: 20100608, end: 20110401
  8. ASPIRIN [Concomitant]
     Dosage: 200 MG, UNK
     Route: 048
     Dates: start: 20050705, end: 20110401
  9. LENDORMIN [Concomitant]
     Dosage: 0.25 MG, UNK
     Route: 048
     Dates: start: 20100810, end: 20110401
  10. HUMALOG [Concomitant]
     Dosage: 12 IU, UNK
     Route: 058
     Dates: start: 20070306, end: 20110401

REACTIONS (3)
  - BLOOD PRESSURE DIASTOLIC DECREASED [None]
  - CONDITION AGGRAVATED [None]
  - BLOOD GLUCOSE INCREASED [None]
